FAERS Safety Report 4628689-2 (Version None)
Quarter: 2005Q1

REPORT INFORMATION
  Report Type: 
  Country: None (occurrence: None)
  Receive Date: 20050107
  Receipt Date: 20041005
  Transmission Date: 20050727
  Serious: No
  Sender: FDA-Public Use
  Company Number: 235053K04USA

PATIENT
  Age: 28 Year
  Sex: Female

DRUGS (2)
  1. REBIF [Suspect]
     Indication: MULTIPLE SCLEROSIS
     Dosage: 44 MCG,  3 IN 1 WEEKS
     Dates: start: 20040316
  2. PREDNISONE [Suspect]

REACTIONS (7)
  - BALANCE DISORDER [None]
  - COORDINATION ABNORMAL [None]
  - EYE DISORDER [None]
  - HYPOACUSIS [None]
  - LEUKOCYTOSIS [None]
  - NEUROPATHY [None]
  - NUCLEAR MAGNETIC RESONANCE IMAGING ABNORMAL [None]
